FAERS Safety Report 13905389 (Version 1)
Quarter: 2017Q3

REPORT INFORMATION
  Report Type: Spontaneous
  Country: US (occurrence: US)
  Receive Date: 20170825
  Receipt Date: 20170825
  Transmission Date: 20171127
  Serious: No
  Sender: FDA-Public Use
  Company Number: US-TEVA-707700USA

PATIENT
  Sex: Female
  Weight: 58.11 kg

DRUGS (1)
  1. ALENDRONATE SODIUM. [Suspect]
     Active Substance: ALENDRONATE SODIUM
     Indication: OSTEOPOROSIS
     Dosage: 10 MILLIGRAM DAILY;
     Dates: start: 20160731

REACTIONS (1)
  - Blood cholesterol increased [Not Recovered/Not Resolved]
